FAERS Safety Report 5079547-3 (Version None)
Quarter: 2006Q3

REPORT INFORMATION
  Report Type: 
  Country: None (occurrence: None)
  Receive Date: 20060814
  Receipt Date: 20060619
  Transmission Date: 20061208
  Serious: No
  Sender: FDA-Public Use
  Company Number: US-BRISTOL-MYERS SQUIBB COMPANY-13416581

PATIENT
  Age: 61 Year
  Sex: Female
  Weight: 68 kg

DRUGS (5)
  1. GLUCOVANCE [Suspect]
     Dates: start: 20060201
  2. ASPIRIN [Concomitant]
  3. LIPITOR [Concomitant]
  4. ALTACE [Concomitant]
  5. COREG [Concomitant]

REACTIONS (4)
  - ABDOMINAL DISTENSION [None]
  - ALOPECIA [None]
  - BREAST SWELLING [None]
  - VAGINAL DISCHARGE [None]
